FAERS Safety Report 18833680 (Version 1)
Quarter: 2021Q1

REPORT INFORMATION
  Report Type: Spontaneous
  Country: US (occurrence: US)
  Receive Date: 20210203
  Receipt Date: 20210203
  Transmission Date: 20210419
  Serious: No
  Sender: FDA-Public Use
  Company Number: US-ALLERGAN-2005228US

PATIENT
  Age: 73 Year
  Sex: Female

DRUGS (1)
  1. BOTOX [Suspect]
     Active Substance: ONABOTULINUMTOXINA
     Indication: FACIAL SPASM
     Dosage: 10 UNITS, SINGLE
     Dates: start: 20200203, end: 20200203

REACTIONS (2)
  - Multiple use of single-use product [Unknown]
  - Injection site pain [Unknown]

NARRATIVE: CASE EVENT DATE: 20200203
